FAERS Safety Report 10705979 (Version 3)
Quarter: 2015Q2

REPORT INFORMATION
  Report Type: Report from Study
  Country: US (occurrence: US)
  Receive Date: 20150113
  Receipt Date: 20150518
  Transmission Date: 20150821
  Serious: Yes (Other)
  Sender: FDA-Public Use
  Company Number: US-BEH-2015047707

PATIENT
  Age: 64 Year
  Sex: Female

DRUGS (1)
  1. ZEMAIRA [Suspect]
     Active Substance: .ALPHA.1-PROTEINASE INHIBITOR HUMAN

REACTIONS (3)
  - Vascular graft [Unknown]
  - Peripheral artery bypass [Unknown]
  - Cataract [Unknown]

NARRATIVE: CASE EVENT DATE: 201503
